FAERS Safety Report 23990048 (Version 1)
Quarter: 2024Q2

REPORT INFORMATION
  Report Type: Spontaneous
  Country: CH (occurrence: None)
  Receive Date: 20240619
  Receipt Date: 20240619
  Transmission Date: 20240715
  Serious: Yes (Hospitalization, Other)
  Sender: FDA-Public Use
  Company Number: 2024A140638

PATIENT
  Age: 19 Year
  Sex: Male
  Weight: 70 kg

DRUGS (8)
  1. QUETIAPINE [Suspect]
     Active Substance: QUETIAPINE
     Dates: start: 20240503
  2. CLONAZEPAM [Suspect]
     Active Substance: CLONAZEPAM
     Dosage: DOSAGE UNKNOWN, LIKELY TAKEN FROM CELLMATES.
  3. MIDAZOLAM [Suspect]
     Active Substance: MIDAZOLAM
  4. CODEINE PHOSPHATE [Suspect]
     Active Substance: CODEINE PHOSPHATE
     Dosage: UNKNOWN DOSAGE, UNKNOWN DURATION OF INGESTION. LIKELY TAKEN FROM NEIGBOURING CELLMATE.
  5. PREGABALIN [Suspect]
     Active Substance: PREGABALIN
     Dosage: UNKNOWN DOSAGE, UNKNOWN DURATION OF INGESTION. LIKELY TAKEN FROM NEIGBOURING CELLMATE.
     Dates: start: 20240502
  6. QUETIAPINE FUMARATE [Suspect]
     Active Substance: QUETIAPINE FUMARATE
     Dosage: AS NECESSARY1.0DF INTERMITTENT
     Dates: start: 20240411
  7. FENTANYL [Suspect]
     Active Substance: FENTANYL\FENTANYL CITRATE
  8. PANTOPRAZOLE SODIUM [Concomitant]
     Active Substance: PANTOPRAZOLE SODIUM
     Dates: start: 20240501

REACTIONS (3)
  - Toxicity to various agents [Recovering/Resolving]
  - Toxic encephalopathy [Recovering/Resolving]
  - Rhabdomyolysis [Recovering/Resolving]

NARRATIVE: CASE EVENT DATE: 20240521
